FAERS Safety Report 7020663-4 (Version None)
Quarter: 2010Q3

REPORT INFORMATION
  Report Type: 
  Country: None (occurrence: None)
  Receive Date: 20100929
  Receipt Date: 20100914
  Transmission Date: 20110219
  Serious: Yes (Other)
  Sender: FDA-Public Use
  Company Number: PHEH2008US07607

PATIENT
  Sex: Female

DRUGS (19)
  1. ZOMETA [Suspect]
     Dosage: UNK
     Dates: start: 20040913, end: 20060101
  2. AREDIA [Suspect]
  3. LORTAB [Concomitant]
     Dosage: 7.5 MG, UNK
  4. TAMOXIFEN CITRATE [Concomitant]
     Dosage: 20 MG
  5. ADVIL LIQUI-GELS [Concomitant]
  6. CEPHALEXIN [Concomitant]
     Dosage: 500 MG
  7. OXYCODONE AND ACETAMINOPHEN [Concomitant]
     Dosage: 5/325 MG
  8. LEXAPRO [Concomitant]
     Dosage: 20 MG
  9. DEXAMETHASONE [Concomitant]
     Dosage: 4 MG
  10. AMBIEN [Concomitant]
     Dosage: 10 MG
  11. ZITHROMAX [Concomitant]
     Dosage: 250 MG
  12. FERROUS SULFATE [Concomitant]
     Dosage: 325 MG
  13. ZIAC [Concomitant]
  14. DARVOCET-N 100 [Concomitant]
  15. NORCO [Concomitant]
  16. BLOOD TRANSFUSION, AUXILIARY PRODUCTS [Concomitant]
  17. VICODIN [Concomitant]
  18. SYNTHROID [Concomitant]
  19. CORZIDE ^MONARCH^ [Concomitant]

REACTIONS (48)
  - ARTHRALGIA [None]
  - ATELECTASIS [None]
  - BONE DISORDER [None]
  - BONE PAIN [None]
  - BREAST MASS [None]
  - CENTRAL VENOUS CATHETERISATION [None]
  - COLLAPSE OF LUNG [None]
  - COMPUTERISED TOMOGRAM ABNORMAL [None]
  - CONCOMITANT DISEASE PROGRESSION [None]
  - DENTAL CARIES [None]
  - DENTAL FISTULA [None]
  - DEPRESSION [None]
  - DRY SKIN [None]
  - DYSGEUSIA [None]
  - FATIGUE [None]
  - GOITRE [None]
  - HEPATIC STEATOSIS [None]
  - IMPAIRED HEALING [None]
  - INFECTION [None]
  - INTERVERTEBRAL DISC DEGENERATION [None]
  - LUNG NEOPLASM [None]
  - MALIGNANT NEOPLASM PROGRESSION [None]
  - MASS [None]
  - METASTASES TO BONE [None]
  - MYALGIA [None]
  - NERVE INJURY [None]
  - NIGHT SWEATS [None]
  - ORAL SURGERY [None]
  - OSTEITIS [None]
  - OSTEONECROSIS OF JAW [None]
  - OSTEOPOROSIS [None]
  - OSTEOSCLEROSIS [None]
  - PAIN [None]
  - PARAESTHESIA [None]
  - PLEURAL EFFUSION [None]
  - RENAL CYST [None]
  - SEROMA [None]
  - SWELLING [None]
  - T-LYMPHOCYTE COUNT INCREASED [None]
  - TOOTH ABSCESS [None]
  - TOOTH EXTRACTION [None]
  - TOOTH FRACTURE [None]
  - TOOTH LOSS [None]
  - UPPER RESPIRATORY TRACT INFECTION [None]
  - UTERINE LEIOMYOMA [None]
  - VISUAL IMPAIRMENT [None]
  - WEIGHT INCREASED [None]
  - WOUND DRAINAGE [None]
